FAERS Safety Report 20549501 (Version 3)
Quarter: 2022Q1

REPORT INFORMATION
  Report Type: Spontaneous
  Country: US (occurrence: US)
  Receive Date: 20220303
  Receipt Date: 20220330
  Transmission Date: 20220423
  Serious: Yes (Hospitalization, Other)
  Sender: FDA-Public Use
  Company Number: US-BIOVITRUM-2022US02116

PATIENT
  Age: 0 Year
  Sex: Male
  Weight: 5 kg

DRUGS (10)
  1. SYNAGIS [Suspect]
     Active Substance: PALIVIZUMAB
     Indication: Cystic fibrosis
     Route: 030
     Dates: start: 20211223
  2. SYNAGIS [Suspect]
     Active Substance: PALIVIZUMAB
     Indication: Premature baby
     Dates: start: 20220303
  3. OMEPRAZOLE [Concomitant]
     Active Substance: OMEPRAZOLE
  4. CREON [Concomitant]
     Active Substance: PANCRELIPASE AMYLASE\PANCRELIPASE LIPASE\PANCRELIPASE PROTEASE
  5. AMOXICILLIN- CLAVULANATE [Concomitant]
  6. IRON [Concomitant]
     Active Substance: IRON
  7. ALBUTEROL [Concomitant]
     Active Substance: ALBUTEROL
  8. SODIUM BICARBONATE [Concomitant]
     Active Substance: SODIUM BICARBONATE
  9. NITROFURANTOIN [Concomitant]
     Active Substance: NITROFURANTOIN
  10. FERROUS SULFATE [Concomitant]
     Active Substance: FERROUS SULFATE

REACTIONS (9)
  - Post procedural infection [Unknown]
  - Haemorrhage [Unknown]
  - Enterococcal infection [Recovered/Resolved]
  - Device dislocation [Unknown]
  - Urinary tract infection [Recovered/Resolved]
  - Gastrointestinal disorder [Unknown]
  - Pyrexia [Unknown]
  - Product dose omission issue [Unknown]
  - Off label use [Unknown]

NARRATIVE: CASE EVENT DATE: 20220120
